FAERS Safety Report 8851430 (Version 1)
Quarter: 2012Q4

REPORT INFORMATION
  Report Type: 
  Country: US (occurrence: US)
  Receive Date: 20121021
  Receipt Date: 20121021
  Transmission Date: 20130627
  Serious: Yes (Other)
  Sender: FDA-Public Use
  Company Number: US-TEVA-364751USA

PATIENT
  Sex: Male

DRUGS (1)
  1. COPAXONE [Suspect]
     Indication: MULTIPLE SCLEROSIS

REACTIONS (4)
  - Multiple sclerosis [Unknown]
  - Fall [Unknown]
  - Hypoaesthesia [Unknown]
  - Movement disorder [Unknown]
